FAERS Safety Report 4322011-7 (Version None)
Quarter: 2004Q1

REPORT INFORMATION
  Report Type: 
  Country: None (occurrence: None)
  Receive Date: 20040319
  Receipt Date: 20030526
  Transmission Date: 20041129
  Serious: No
  Sender: FDA-Public Use
  Company Number: 200301767

PATIENT
  Age: 71 Year
  Sex: Female
  Weight: 67.1324 kg

DRUGS (3)
  1. LUMIGAN [Suspect]
     Indication: GLAUCOMA
     Dosage: 2 DROP QD EYE
  2. LUMIGAN [Suspect]
     Indication: GLAUCOMA
     Dosage: 2 DROP QD EYE
  3. IBUPROFEN [Concomitant]

REACTIONS (3)
  - EYE DISORDER [None]
  - EYE PRURITUS [None]
  - SKIN HYPERPIGMENTATION [None]
